FAERS Safety Report 9180584 (Version 1)
Quarter: 2013Q1

REPORT INFORMATION
  Report Type: Spontaneous
  Country: US (occurrence: None)
  Receive Date: 20130320
  Receipt Date: 20130320
  Transmission Date: 20140127
  Serious: Yes (Hospitalization)
  Sender: FDA-Public Use
  Company Number: 2013P1003166

PATIENT
  Age: 70 Year
  Sex: Female

DRUGS (1)
  1. INFUMORPH [Suspect]
     Indication: SPINAL PAIN
     Dates: start: 20130225

REACTIONS (4)
  - Mental status changes [None]
  - Pyrexia [None]
  - Hallucination [None]
  - Overdose [None]
